FAERS Safety Report 5057479-4 (Version None)
Quarter: 2006Q3

REPORT INFORMATION
  Report Type: 
  Country: None (occurrence: None)
  Receive Date: 20060721
  Receipt Date: 20051018
  Transmission Date: 20061208
  Serious: No
  Sender: FDA-Public Use
  Company Number: US-GLAXOSMITHKLINE-A0578662A

PATIENT
  Age: 50 Year
  Sex: Male

DRUGS (4)
  1. AVANDIA [Suspect]
     Dosage: 4MG TWICE PER DAY
     Route: 048
     Dates: start: 20040101
  2. LANVIS [Concomitant]
     Route: 065
  3. LOTREL [Concomitant]
  4. GLUCOPHAGE [Concomitant]

REACTIONS (2)
  - DIARRHOEA [None]
  - PARAESTHESIA [None]
